FAERS Safety Report 23126965 (Version 1)
Quarter: 2023Q4

REPORT INFORMATION
  Report Type: Spontaneous
  Country: US (occurrence: US)
  Receive Date: 20231030
  Receipt Date: 20231030
  Transmission Date: 20240110
  Serious: No
  Sender: FDA-Public Use
  Company Number: US-Calliditas-2023CAL01391

PATIENT
  Age: 68 Year
  Sex: Female

DRUGS (1)
  1. TARPEYO [Suspect]
     Active Substance: BUDESONIDE
     Indication: Haematuria
     Route: 048
     Dates: start: 20230309

REACTIONS (5)
  - Increased appetite [Unknown]
  - Blood urea abnormal [Unknown]
  - Off label use [Unknown]
  - Blood creatinine abnormal [Unknown]
  - Proteinuria [Unknown]
